FAERS Safety Report 7722256-X (Version None)
Quarter: 2011Q3

REPORT INFORMATION
  Report Type: 
  Country: None (occurrence: None)
  Receive Date: 20110831
  Receipt Date: 20110822
  Transmission Date: 20111222
  Serious: Yes (Hospitalization, Other)
  Sender: FDA-Public Use
  Company Number: US-ELI_LILLY_AND_COMPANY-US201108007276

PATIENT
  Sex: Male

DRUGS (4)
  1. HUMALOG MIX 75/25 [Suspect]
     Dosage: 14 U, EACH EVENING
     Dates: start: 20080101
  2. HUMALOG MIX 75/25 [Suspect]
     Indication: DIABETES MELLITUS
     Dosage: 24 U, EACH MORNING
     Dates: start: 20080101
  3. HUMALOG MIX 75/25 [Suspect]
     Dosage: 14 U, EACH EVENING
     Dates: start: 20080101
  4. HUMALOG MIX 75/25 [Suspect]
     Dosage: 24 U, EACH MORNING
     Dates: start: 20080101

REACTIONS (3)
  - DEAFNESS UNILATERAL [None]
  - HYPOACUSIS [None]
  - MYOCARDIAL INFARCTION [None]
